FAERS Safety Report 6099847-8 (Version None)
Quarter: 2009Q1

REPORT INFORMATION
  Report Type: 
  Country: None (occurrence: None)
  Receive Date: 20090303
  Receipt Date: 20090225
  Transmission Date: 20090719
  Serious: Yes (Death, Hospitalization, Other)
  Sender: FDA-Public Use
  Company Number: PHHY2008JP31758

PATIENT
  Age: 57 Year
  Sex: Male

DRUGS (1)
  1. METOPIRONE [Suspect]
     Indication: CUSHING'S SYNDROME
     Route: 048

REACTIONS (6)
  - BLOOD PRESSURE DECREASED [None]
  - BRONCHOALVEOLAR LAVAGE [None]
  - MALAISE [None]
  - OXYGEN SATURATION DECREASED [None]
  - PNEUMOCYSTIS JIROVECI PNEUMONIA [None]
  - PYREXIA [None]
